FAERS Safety Report 19895786 (Version 1)
Quarter: 2021Q3

REPORT INFORMATION
  Report Type: Spontaneous
  Country: US (occurrence: US)
  Receive Date: 20210929
  Receipt Date: 20210929
  Transmission Date: 20211014
  Serious: No
  Sender: FDA-Public Use
  Company Number: None

PATIENT
  Age: 65 Year
  Sex: Male
  Weight: 90.26 kg

DRUGS (1)
  1. INSULIN (INSULIN, GLARGINE , HUMAN 100 UNIT/ML INJ, SOLOSTAR,3ML) [Suspect]
     Active Substance: INSULIN GLARGINE
     Indication: DIABETES MELLITUS
     Dosage: ?          OTHER DOSE:15 UNITS;?
     Route: 058
     Dates: start: 20210716, end: 20210723

REACTIONS (2)
  - Hypersensitivity [None]
  - Hyperglycaemia [None]

NARRATIVE: CASE EVENT DATE: 20210723
